FAERS Safety Report 19963984 (Version 1)
Quarter: 2021Q4

REPORT INFORMATION
  Report Type: Spontaneous
  Country: US (occurrence: US)
  Receive Date: 20211018
  Receipt Date: 20211018
  Transmission Date: 20220303
  Serious: Yes (Other)
  Sender: FDA-Public Use
  Company Number: US-PFIZER INC-202101355243

PATIENT
  Age: 45 Year
  Sex: Male
  Weight: 131.54 kg

DRUGS (3)
  1. EFFEXOR XR [Suspect]
     Active Substance: VENLAFAXINE HYDROCHLORIDE
     Indication: Depressed mood
     Dosage: 150 MG (FOR YEARS)
  2. EFFEXOR XR [Suspect]
     Active Substance: VENLAFAXINE HYDROCHLORIDE
     Indication: Personality change
     Dosage: 75 MG, 1X/DAY
     Route: 048
  3. EFFEXOR XR [Suspect]
     Active Substance: VENLAFAXINE HYDROCHLORIDE
     Indication: Analgesic therapy

REACTIONS (6)
  - Suicidal ideation [Unknown]
  - Feeling abnormal [Unknown]
  - Muscle twitching [Unknown]
  - Intentional product misuse [Unknown]
  - Anger [Unknown]
  - Crying [Unknown]
